FAERS Safety Report 6128965-0 (Version None)
Quarter: 2009Q1

REPORT INFORMATION
  Report Type: 
  Country: None (occurrence: None)
  Receive Date: 20090324
  Receipt Date: 20090316
  Transmission Date: 20090719
  Serious: Yes (Death, Hospitalization)
  Sender: FDA-Public Use
  Company Number: PHHY2009TN10332

PATIENT
  Age: 38 Year
  Sex: Female

DRUGS (11)
  1. CYCLOSPORINE [Suspect]
     Indication: BONE MARROW TRANSPLANT
     Dosage: UNK
  2. CYCLOSPORINE [Suspect]
     Indication: PROPHYLAXIS AGAINST GRAFT VERSUS HOST DISEASE
  3. PREDNISOLONE [Suspect]
     Indication: BONE MARROW TRANSPLANT
  4. PREDNISOLONE [Suspect]
     Indication: PROPHYLAXIS AGAINST GRAFT VERSUS HOST DISEASE
  5. BUSULFAN [Concomitant]
     Indication: BONE MARROW CONDITIONING REGIMEN
  6. CYCLOPHOSPHAMIDE [Concomitant]
     Indication: BONE MARROW CONDITIONING REGIMEN
  7. CORTICOSTEROID NOS [Concomitant]
     Indication: GRAFT VERSUS HOST DISEASE
  8. THALIDOMIDE [Concomitant]
     Indication: GRAFT VERSUS HOST DISEASE
  9. VORICONAZOLE [Concomitant]
  10. CYMEVAN [Concomitant]
  11. MABTHERA [Concomitant]

REACTIONS (13)
  - BRONCHOPULMONARY ASPERGILLOSIS [None]
  - CHOLESTASIS [None]
  - CYTOLYTIC HEPATITIS [None]
  - CYTOMEGALOVIRUS INFECTION [None]
  - GASTRIC DISORDER [None]
  - GRAFT VERSUS HOST DISEASE [None]
  - LUNG DISORDER [None]
  - LUNG INFECTION PSEUDOMONAL [None]
  - OBLITERATIVE BRONCHIOLITIS [None]
  - RASH ERYTHEMATOUS [None]
  - RASH MACULO-PAPULAR [None]
  - RASH VESICULAR [None]
  - RESPIRATORY FAILURE [None]
